FAERS Safety Report 5238823-1 (Version None)
Quarter: 2007Q1

REPORT INFORMATION
  Report Type: 
  Country: None (occurrence: None)
  Receive Date: 20070215
  Receipt Date: 20070206
  Transmission Date: 20070707
  Serious: Yes (Other)
  Sender: FDA-Public Use
  Company Number: BR-PFIZER INC-2007000464

PATIENT
  Sex: Female

DRUGS (2)
  1. DEPO-PROVERA [Suspect]
     Indication: CONTRACEPTION
     Dates: start: 20060830, end: 20060830
  2. DEPO-PROVERA [Suspect]
     Indication: MENSTRUAL DISCOMFORT
     Dates: start: 20061201, end: 20061201

REACTIONS (8)
  - ANXIETY [None]
  - DEPRESSION [None]
  - EATING DISORDER [None]
  - INSOMNIA [None]
  - MENORRHAGIA [None]
  - PANIC ATTACK [None]
  - SUICIDAL IDEATION [None]
  - WEIGHT DECREASED [None]
